FAERS Safety Report 8439929-6 (Version None)
Quarter: 2012Q2

REPORT INFORMATION
  Report Type: 
  Country: None (occurrence: None)
  Receive Date: 20120615
  Receipt Date: 20120609
  Transmission Date: 20120825
  Serious: Yes (Hospitalization)
  Sender: FDA-Public Use
  Company Number: US-B.I. PHARMACEUTICALS,INC./RIDGEFIELD-2012-RU-00084BP

PATIENT
  Sex: Male
  Weight: 90.7 kg

DRUGS (4)
  1. POTASSIUM CHLORIDE [Suspect]
     Indication: MINERAL SUPPLEMENTATION
     Dosage: 10 MEQ
     Route: 048
  2. BI 1744+TIOTROPIUM [Suspect]
     Indication: CHRONIC OBSTRUCTIVE PULMONARY DISEASE
     Dates: start: 20120113, end: 20120319
  3. FLOVENT [Concomitant]
     Indication: CHRONIC OBSTRUCTIVE PULMONARY DISEASE
     Dosage: 220 MEQ
     Route: 055
     Dates: start: 20111226, end: 20120319
  4. PROAIR HFA [Concomitant]
     Indication: CHRONIC OBSTRUCTIVE PULMONARY DISEASE
     Dosage: 180 MEQ
     Route: 055
     Dates: start: 20111111, end: 20120319

REACTIONS (4)
  - ACUTE RESPIRATORY FAILURE [None]
  - HYPERKALAEMIA [None]
  - CHRONIC OBSTRUCTIVE PULMONARY DISEASE [None]
  - RESPIRATORY TRACT INFECTION [None]
